FAERS Safety Report 4820843-X (Version None)
Quarter: 2005Q4

REPORT INFORMATION
  Report Type: 
  Country: None (occurrence: None)
  Receive Date: 20051104
  Receipt Date: 20050525
  Transmission Date: 20060501
  Serious: Yes (Death)
  Sender: FDA-Public Use
  Company Number: GB-AVENTIS-200514924GDDC

PATIENT
  Age: 60 Year
  Sex: Male

DRUGS (7)
  1. ARAVA [Suspect]
     Indication: RHEUMATOID ARTHRITIS
     Route: 048
     Dates: start: 20031219, end: 20041001
  2. FLUCLOXACILLIN [Concomitant]
     Indication: CELLULITIS
     Route: 048
     Dates: start: 20040930
  3. PREDNISOLONE [Concomitant]
     Indication: RHEUMATOID ARTHRITIS
     Route: 048
  4. PREDNISOLONE [Concomitant]
     Indication: ASTHMA
     Route: 048
  5. ALENDRONATE [Concomitant]
     Indication: OSTEOPOROSIS
     Route: 048
     Dates: start: 20020101
  6. DIHYDROCODEINE [Concomitant]
     Indication: PAIN
     Route: 048
  7. AMINOPHYLLINE [Concomitant]
     Indication: ASTHMA
     Dosage: DOSE: UNK
     Route: 048

REACTIONS (1)
  - HEPATIC FAILURE [None]
